FAERS Safety Report 8420864-4 (Version None)
Quarter: 2012Q2

REPORT INFORMATION
  Report Type: 
  Country: None (occurrence: None)
  Receive Date: 20120531
  Receipt Date: 20120529
  Transmission Date: 20120825
  Serious: Yes (Hospitalization, Other)
  Sender: FDA-Public Use
  Company Number: ADR-2005-2233

PATIENT
  Age: 32 Year
  Sex: Female

DRUGS (2)
  1. LIORESAL [Suspect]
     Indication: MULTIPLE SCLEROSIS
     Dosage: MCG, DAILY, INTRATH
     Route: 037
  2. LIORESAL [Suspect]
     Indication: MUSCLE SPASTICITY
     Dosage: MCG, DAILY, INTRATH
     Route: 037

REACTIONS (4)
  - THROMBOSIS [None]
  - MENINGITIS CHEMICAL [None]
  - MITRAL VALVE DISEASE [None]
  - PULMONARY THROMBOSIS [None]
